FAERS Safety Report 9005456 (Version 4)
Quarter: 2013Q3

REPORT INFORMATION
  Report Type: Report from Study
  Country: US (occurrence: US)
  Receive Date: 20130109
  Receipt Date: 20130717
  Transmission Date: 20140515
  Serious: Yes (Hospitalization)
  Sender: FDA-Public Use
  Company Number: US-ACTELION-A-NJ2012-77196

PATIENT
  Age: 65 Year
  Sex: Female

DRUGS (4)
  1. VELETRI [Suspect]
     Indication: PULMONARY ARTERIAL HYPERTENSION
     Dosage: 51 NG/KG, PER MIN
     Route: 042
  2. VELETRI [Suspect]
     Dosage: 48.5 NG/KG, UNK
     Route: 041
     Dates: start: 20110103
  3. COUMADIN [Concomitant]
     Dosage: UNK
  4. COUMADIN [Concomitant]
     Dosage: UNK

REACTIONS (8)
  - Thrombosis [Recovering/Resolving]
  - Fall [Recovering/Resolving]
  - Cerebral haemorrhage [Recovering/Resolving]
  - Gastrointestinal haemorrhage [Recovering/Resolving]
  - Dyspnoea [Recovering/Resolving]
  - Haemorrhage [Recovering/Resolving]
  - Anaemia [Recovering/Resolving]
  - Thrombocytopenia [Recovering/Resolving]
